FAERS Safety Report 7093918-5 (Version None)
Quarter: 2010Q4

REPORT INFORMATION
  Report Type: 
  Country: None (occurrence: None)
  Receive Date: 20101102
  Receipt Date: 20101019
  Transmission Date: 20110411
  Serious: Yes (Hospitalization)
  Sender: FDA-Public Use
  Company Number: 729867

PATIENT
  Age: 50 Year
  Sex: Male

DRUGS (19)
  1. HEPARIN SODIUM [Suspect]
     Indication: MYOCARDIAL INFARCTION
     Dosage: 800-1000 UNITS/HOUR, INTRAVENOUS
     Route: 042
     Dates: start: 20060515
  2. HEPARIN SODIUM [Suspect]
     Indication: MYOCARDIAL INFARCTION
     Dosage: 800-1000 UNITS/HOUR, INTRAVENOUS
     Route: 042
     Dates: start: 20060626
  3. HEPARIN SODIUM INJ [Suspect]
     Indication: MYOCARDIAL INFARCTION
     Route: 041
     Dates: start: 20060626, end: 20060601
  4. HEPARIN SODIUM [Suspect]
     Indication: MYOCARDIAL INFARCTION
     Dosage: 5000 UNITS
     Route: 040
     Dates: start: 20060626, end: 20060626
  5. HEPARIN SODIUM [Suspect]
     Indication: MYOCARDIAL INFARCTION
     Dosage: (NOT REPORTED) (5000 UNITS) (5000 UNITS)
     Route: 041
     Dates: start: 20060513
  6. HEPARIN SODIUM [Suspect]
     Indication: PRODUCT USED FOR UNKNOWN INDICATION
     Dosage: (NOT REPORTED) (5000 UNITS) (5000 UNITS)
     Route: 041
     Dates: start: 20060513
  7. HEPARIN SODIUM [Suspect]
     Indication: MYOCARDIAL INFARCTION
     Dosage: (NOT REPORTED) (5000 UNITS) (5000 UNITS)
     Route: 041
     Dates: start: 20060516
  8. HEPARIN SODIUM [Suspect]
     Indication: PRODUCT USED FOR UNKNOWN INDICATION
     Dosage: (NOT REPORTED) (5000 UNITS) (5000 UNITS)
     Route: 041
     Dates: start: 20060516
  9. HEPARIN SODIUM [Suspect]
     Indication: MYOCARDIAL INFARCTION
     Dosage: (NOT REPORTED) (5000 UNITS) (5000 UNITS)
     Route: 041
     Dates: start: 20060716
  10. HEPARIN SODIUM [Suspect]
     Indication: PRODUCT USED FOR UNKNOWN INDICATION
     Dosage: (NOT REPORTED) (5000 UNITS) (5000 UNITS)
     Route: 041
     Dates: start: 20060716
  11. HEPARIN LOCK FLUSH [Suspect]
     Dates: start: 20060501, end: 20060701
  12. ENALAPRIL MALEATE [Concomitant]
  13. POTASSIUM CHLORIDE [Concomitant]
  14. ATENOLOL [Concomitant]
  15. NORVASC [Concomitant]
  16. NITROLINGUAL [Concomitant]
  17. NEXIUM [Concomitant]
  18. ACETYLSALICYLIC ACID [Concomitant]
  19. GLYCERYL TRINITRATE [Concomitant]

REACTIONS (12)
  - CHEST PAIN [None]
  - CORONARY ARTERY OCCLUSION [None]
  - HEPARIN-INDUCED THROMBOCYTOPENIA [None]
  - HYPERCOAGULATION [None]
  - MYOCARDIAL INFARCTION [None]
  - NAUSEA [None]
  - RENAL ARTERY THROMBOSIS [None]
  - RENAL IMPAIRMENT [None]
  - THROMBOSIS [None]
  - TRANSPLANT FAILURE [None]
  - VEIN DISORDER [None]
  - VENOUS STENOSIS [None]
